FAERS Safety Report 18784369 (Version 1)
Quarter: 2021Q1

REPORT INFORMATION
  Report Type: Other
  Country: US (occurrence: US)
  Receive Date: 20210125
  Receipt Date: 20210125
  Transmission Date: 20210419
  Serious: Yes (Death, Hospitalization)
  Sender: FDA-Public Use
  Company Number: US-ROCHE-2507145

PATIENT
  Age: 16 Year
  Sex: Female

DRUGS (2)
  1. RUXOLITINIB [Suspect]
     Active Substance: RUXOLITINIB
     Indication: EPSTEIN-BARR VIRUS INFECTION
     Route: 065
  2. RITUXIMAB. [Suspect]
     Active Substance: RITUXIMAB
     Indication: EPSTEIN-BARR VIRUS INFECTION
     Route: 065

REACTIONS (3)
  - Human polyomavirus infection [Unknown]
  - JC virus infection [Fatal]
  - Respiratory syncytial virus infection [Unknown]
